FAERS Safety Report 9416298 (Version 4)
Quarter: 2013Q3

REPORT INFORMATION
  Report Type: Spontaneous
  Country: IT (occurrence: IT)
  Receive Date: 20130724
  Receipt Date: 20130902
  Transmission Date: 20140515
  Serious: Yes (Life-Threatening)
  Sender: FDA-Public Use
  Company Number: IT-ROCHE-1251144

PATIENT
  Age: 38 Year
  Sex: Female

DRUGS (3)
  1. VALIUM [Suspect]
     Indication: ANXIETY
     Route: 048
     Dates: start: 20130712, end: 20130712
  2. PASADEN (ITALY) [Suspect]
     Indication: ANXIETY
     Route: 048
     Dates: start: 20130712, end: 20130712
  3. PARACODINA (DIHYDROCODEINE THIOCYANATE) [Suspect]
     Indication: PRODUCT USED FOR UNKNOWN INDICATION
     Route: 048
     Dates: start: 20130712, end: 20130712

REACTIONS (3)
  - Sopor [Recovered/Resolved]
  - Drug abuse [Unknown]
  - Hypotension [Recovered/Resolved]
